FAERS Safety Report 5862683-9 (Version None)
Quarter: 2008Q3

REPORT INFORMATION
  Report Type: 
  Country: None (occurrence: None)
  Receive Date: 20080828
  Receipt Date: 20080818
  Transmission Date: 20090109
  Serious: Yes (Death, Hospitalization)
  Sender: FDA-Public Use
  Company Number: HQWYE712601DEC04

PATIENT
  Sex: Male
  Weight: 76 kg

DRUGS (3)
  1. TEMSIROLIMUS [Suspect]
     Indication: RENAL CELL CARCINOMA
     Route: 042
     Dates: start: 20041110, end: 20041124
  2. ONDANSETRON [Concomitant]
     Indication: NAUSEA
     Dosage: 8 MG AS NEEDED
     Route: 048
     Dates: start: 20041110, end: 20041123
  3. DICLOFENAC [Concomitant]
     Indication: HEPATIC PAIN
     Dosage: 75 MG AS NEEDED
     Route: 048
     Dates: start: 20041020, end: 20041123

REACTIONS (2)
  - DIARRHOEA [None]
  - RENAL FAILURE ACUTE [None]
